FAERS Safety Report 10808528 (Version 1)
Quarter: 2015Q1

REPORT INFORMATION
  Report Type: Report from Study
  Country: US (occurrence: US)
  Receive Date: 20150217
  Receipt Date: 20150217
  Transmission Date: 20150721
  Serious: No
  Sender: FDA-Public Use
  Company Number: US-ABBVIE-14K-163-1248049-00

PATIENT
  Age: 50 Year
  Sex: Female

DRUGS (7)
  1. HUMIRA [Suspect]
     Active Substance: ADALIMUMAB
     Dates: start: 20140527, end: 20140527
  2. CLOBEX [Concomitant]
     Active Substance: CLOBETASOL PROPIONATE
     Indication: PRODUCT USED FOR UNKNOWN INDICATION
     Route: 061
  3. HUMIRA [Suspect]
     Active Substance: ADALIMUMAB
     Indication: PSORIASIS
     Dates: start: 20140506, end: 20140506
  4. ANTIBIOTICS [Suspect]
     Active Substance: UNSPECIFIED INGREDIENT
     Indication: COUGH
  5. HUMIRA [Suspect]
     Active Substance: ADALIMUMAB
     Dates: start: 20140610
  6. HUMIRA [Suspect]
     Active Substance: ADALIMUMAB
     Dates: start: 20140513, end: 20140513
  7. LEXAPRO [Concomitant]
     Active Substance: ESCITALOPRAM OXALATE
     Indication: PRODUCT USED FOR UNKNOWN INDICATION
     Dosage: DAILY

REACTIONS (6)
  - Sputum discoloured [Unknown]
  - Fatigue [Unknown]
  - Bronchitis [Unknown]
  - Productive cough [Unknown]
  - Sinus congestion [Unknown]
  - Hypersensitivity [Unknown]

NARRATIVE: CASE EVENT DATE: 20140519
